FAERS Safety Report 24587350 (Version 3)
Quarter: 2024Q4

REPORT INFORMATION
  Report Type: Spontaneous
  Country: JP (occurrence: JP)
  Receive Date: 20241107
  Receipt Date: 20241229
  Transmission Date: 20250115
  Serious: Yes (Death, Other)
  Sender: SANOFI AVENTIS
  Company Number: JP-SAKK-2024SA311610AA

PATIENT
  Age: 79 Year
  Sex: Male

DRUGS (2)
  1. THYMOGLOBULINE [Suspect]
     Active Substance: LAPINE T-LYMPHOCYTE IMMUNE GLOBULIN
     Indication: Aplastic anaemia
     Route: 041
  2. CYCLOSPORINE [Concomitant]
     Active Substance: CYCLOSPORINE
     Indication: Aplastic anaemia
     Route: 065

REACTIONS (6)
  - Haematemesis [Fatal]
  - Cerebral haemorrhage [Fatal]
  - Hemiplegia [Fatal]
  - Altered state of consciousness [Fatal]
  - Bacillus bacteraemia [Fatal]
  - Pyrexia [Fatal]
